FAERS Safety Report 12689362 (Version 1)
Quarter: 2016Q3

REPORT INFORMATION
  Report Type: Spontaneous
  Country: US (occurrence: None)
  Receive Date: 20160825
  Receipt Date: 20160825
  Transmission Date: 20161109
  Serious: No
  Sender: FDA-Public Use
  Company Number: None

PATIENT
  Age: 63 Year
  Sex: Female
  Weight: 52.16 kg

DRUGS (9)
  1. PEPCID [Concomitant]
     Active Substance: FAMOTIDINE
  2. CRESTOR [Concomitant]
     Active Substance: ROSUVASTATIN CALCIUM
  3. ATENOLOL. [Concomitant]
     Active Substance: ATENOLOL
  4. ATACAND [Concomitant]
     Active Substance: CANDESARTAN CILEXETIL
  5. CALCIUM [Concomitant]
     Active Substance: CALCIUM
  6. CO-Q10 [Concomitant]
  7. PROPOFOL. [Suspect]
     Active Substance: PROPOFOL
     Indication: ANAESTHESIA
     Route: 042
  8. VITAMIN D [Concomitant]
     Active Substance: CHOLECALCIFEROL
  9. MULTIVITAMIN [Concomitant]
     Active Substance: VITAMINS

REACTIONS (8)
  - Eye pruritus [None]
  - Lacrimation increased [None]
  - Disease recurrence [None]
  - Sneezing [None]
  - Feeling abnormal [None]
  - Rhinorrhoea [None]
  - Eye irritation [None]
  - Adenovirus infection [None]

NARRATIVE: CASE EVENT DATE: 20160818
